FAERS Safety Report 13539015 (Version 1)
Quarter: 2017Q2

REPORT INFORMATION
  Report Type: Report from Study
  Country: CL (occurrence: CL)
  Receive Date: 20170512
  Receipt Date: 20170512
  Transmission Date: 20170830
  Serious: Yes (Other)
  Sender: FDA-Public Use
  Company Number: PHHY2017CL038234

PATIENT
  Age: 22 Year
  Sex: Female
  Weight: 73 kg

DRUGS (5)
  1. GILENYA [Suspect]
     Active Substance: FINGOLIMOD HYDROCHLORIDE
     Indication: MULTIPLE SCLEROSIS
     Dosage: 0.5 MG, QD
     Route: 048
     Dates: start: 20140804
  2. VITAMIN D3 [Concomitant]
     Active Substance: CHOLECALCIFEROL
     Indication: PROPHYLAXIS
     Dosage: 2000 IU, UNK
     Route: 048
     Dates: start: 201603
  3. TINELLE [Concomitant]
     Indication: CONTRACEPTION
     Dosage: 1 DF, UNK
     Route: 048
     Dates: start: 201701
  4. ESCITALOPRAM [Concomitant]
     Active Substance: ESCITALOPRAM OXALATE
     Indication: ANXIETY
     Dosage: 1 DF, UNK
     Route: 048
     Dates: start: 2014
  5. YAZ [Concomitant]
     Active Substance: DROSPIRENONE\ETHINYL ESTRADIOL
     Indication: CONTRACEPTION
     Dosage: 1 OT, UNK
     Route: 065
     Dates: start: 20150729

REACTIONS (2)
  - Melanocytic naevus [Unknown]
  - Dysplastic naevus [Recovered/Resolved]

NARRATIVE: CASE EVENT DATE: 20170307
